FAERS Safety Report 9466792 (Version 2)
Quarter: 2013Q3

REPORT INFORMATION
  Report Type: Spontaneous
  Country: US (occurrence: US)
  Receive Date: 20130820
  Receipt Date: 20130820
  Transmission Date: 20140515
  Serious: Yes (Hospitalization, Other)
  Sender: FDA-Public Use
  Company Number: US-PFIZER INC-2013129807

PATIENT
  Age: 53 Year
  Sex: Male

DRUGS (14)
  1. DILANTIN-125 [Suspect]
     Indication: CONVULSION
     Dosage: 100 MG, 3X/DAY
     Route: 048
     Dates: start: 20001207, end: 20050214
  2. ASPIRIN [Concomitant]
     Dosage: UNK
  3. PLAVIX [Concomitant]
     Dosage: UNK
  4. VASOTEC [Concomitant]
     Dosage: 2.5 MG, 1X/DAY
  5. ZETIA [Concomitant]
     Dosage: UNK
  6. LIDOCAINE [Concomitant]
     Dosage: UNK
  7. LOPRESSOR [Concomitant]
     Dosage: UNK
  8. TOPAMAX [Concomitant]
     Dosage: UNK
  9. ACYCLOVIR [Concomitant]
     Dosage: UNK
  10. PRAVACHOL [Concomitant]
     Dosage: 10 MG, 1X/DAY
  11. NITRO-BID [Concomitant]
     Dosage: 25 MG, 2X/DAY
  12. NITROGLYCERIN [Concomitant]
     Dosage: UNK
  13. INDOCIN [Concomitant]
     Dosage: UNK
  14. CARDIZEM CD [Concomitant]
     Dosage: 24 MG, 1X/DAY

REACTIONS (2)
  - Stevens-Johnson syndrome [Unknown]
  - Toxic epidermal necrolysis [Unknown]
